FAERS Safety Report 9165776 (Version 1)
Quarter: 2013Q1

REPORT INFORMATION
  Report Type: Spontaneous
  Country: GB (occurrence: None)
  Receive Date: 20130304
  Receipt Date: 20130304
  Transmission Date: 20140127
  Serious: Yes (Hospitalization)
  Sender: FDA-Public Use
  Company Number: GER/UKI/13/0028267

PATIENT
  Age: 27 Year
  Sex: Female

DRUGS (3)
  1. QUETIAPINE (QUETIAPINE) (QUETIAPINE) [Suspect]
     Indication: PRODUCT USED FOR UNKNOWN INDICATION
     Dates: start: 20130219
  2. VENLAFAXINE (VENLAFAXINE) [Suspect]
     Indication: PRODUCT USED FOR UNKNOWN INDICATION
     Dates: start: 20130219
  3. CLOZARIL (CLOZAPINE) [Suspect]
     Indication: SCHIZOPHRENIA
     Route: 048
     Dates: start: 20130219

REACTIONS (2)
  - Overdose [None]
  - No adverse event [None]
